FAERS Safety Report 8094573 (Version 2)
Quarter: 2013Q1

REPORT INFORMATION
  Report Type: Spontaneous
  Country: US (occurrence: None)
  Receive Date: 20110809
  Receipt Date: 20130318
  Transmission Date: 20140127
  Serious: Yes (Hospitalization)
  Sender: FDA-Public Use
  Company Number: 2011-010

PATIENT
  Age: 3 Year
  Sex: Male

DRUGS (3)
  1. VALPROIC ACID [Suspect]
     Indication: CONVULSION
  2. PHENOBARBITAL [Concomitant]
  3. CLONIDINE [Concomitant]

REACTIONS (4)
  - Convulsion [None]
  - Bradycardia [None]
  - Depressed level of consciousness [None]
  - Refusal of treatment by relative [None]
